FAERS Safety Report 16017079 (Version 1)
Quarter: 2019Q1

REPORT INFORMATION
  Report Type: Spontaneous
  Country: US (occurrence: US)
  Receive Date: 20190228
  Receipt Date: 20190228
  Transmission Date: 20190418
  Serious: No
  Sender: FDA-Public Use
  Company Number: US-BAYER-2019-040582

PATIENT
  Sex: Male
  Weight: 57 kg

DRUGS (1)
  1. MIRALAX [Suspect]
     Active Substance: POLYETHYLENE GLYCOL 3350
     Indication: GASTROINTESTINAL DISORDER
     Dosage: UNK, HALF CAP FULL; HALF OF THE DOSAGE AMOUNT
     Route: 048

REACTIONS (2)
  - Dysgeusia [Unknown]
  - Incorrect dose administered [Unknown]
